FAERS Safety Report 9262140 (Version 3)
Quarter: 2014Q2

REPORT INFORMATION
  Report Type: Spontaneous
  Country: JP (occurrence: JP)
  Receive Date: 20130430
  Receipt Date: 20140403
  Transmission Date: 20141212
  Serious: Yes (Other)
  Sender: FDA-Public Use
  Company Number: JP-ROCHE-1218894

PATIENT
  Age: 57 Year
  Sex: Male
  Weight: 53 kg

DRUGS (23)
  1. RITUXAN [Suspect]
     Indication: PROPHYLAXIS AGAINST TRANSPLANT REJECTION
     Route: 042
     Dates: start: 20110315, end: 20110315
  2. CELLCEPT [Suspect]
     Indication: PROPHYLAXIS AGAINST TRANSPLANT REJECTION
     Dosage: DOSAGE IS UNCERTAIN
     Route: 048
     Dates: start: 20110315, end: 20110329
  3. CELLCEPT [Suspect]
     Indication: PROPHYLAXIS AGAINST TRANSPLANT REJECTION
     Dosage: DOSAGE IS UNCERTAIN
     Route: 048
     Dates: start: 20110330, end: 20110412
  4. CELLCEPT [Suspect]
     Indication: PROPHYLAXIS AGAINST TRANSPLANT REJECTION
     Dosage: DOSAGE IS UNCERTAIN
     Route: 048
     Dates: start: 20110413, end: 20110421
  5. CELLCEPT [Suspect]
     Indication: PROPHYLAXIS AGAINST TRANSPLANT REJECTION
     Route: 048
     Dates: start: 20110428, end: 20110511
  6. CELLCEPT [Suspect]
     Indication: PROPHYLAXIS AGAINST TRANSPLANT REJECTION
     Route: 048
     Dates: start: 20110512
  7. PREDNISOLONE [Suspect]
     Indication: PROPHYLAXIS AGAINST TRANSPLANT REJECTION
     Route: 065
     Dates: start: 20110315
  8. NEORAL [Suspect]
     Indication: PROPHYLAXIS AGAINST TRANSPLANT REJECTION
     Route: 065
     Dates: start: 20110324
  9. BASILIXIMAB [Suspect]
     Indication: PROPHYLAXIS AGAINST TRANSPLANT REJECTION
     Dosage: DOSAGE IS UNCERTAIN
     Route: 065
  10. ATELEC [Concomitant]
     Dosage: DOSAGE IS UNCERTAIN.
     Route: 065
  11. LIPITOR [Concomitant]
     Dosage: DOSAGE IS UNCERTAIN.
     Route: 065
  12. PARIET [Concomitant]
     Dosage: DOSAGE IS UNCERTAIN.
     Route: 065
  13. LASIX [Concomitant]
     Dosage: DOSAGE IS UNCERTAIN.
     Route: 065
  14. BLOPRESS [Concomitant]
     Dosage: DOSAGE IS UNCERTAIN.
     Route: 065
  15. RASILEZ [Concomitant]
     Dosage: DOSAGE IS UNCERTAIN.
     Route: 065
  16. TANKARU [Concomitant]
     Dosage: DOSAGE IS UNCERTAIN.
     Route: 048
  17. WARKMIN [Concomitant]
     Dosage: DOSAGE IS UNCERTAIN.
     Route: 065
  18. CEROCRAL [Concomitant]
     Dosage: DOSAGE IS UNCERTAIN.
     Route: 065
  19. PLETAAL [Concomitant]
     Dosage: DOSAGE IS UNCERTAIN.
     Route: 065
  20. ARTIST [Concomitant]
     Dosage: DOSAGE IS UNCERTAIN.
     Route: 065
  21. ALDOMET [Concomitant]
     Dosage: DOSAGE IS UNCERTAIN.
     Route: 065
  22. LOXONIN [Concomitant]
     Dosage: DOSAGE IS UNCERTAIN.
     Route: 065
  23. VENA [Concomitant]
     Dosage: DOSAGE IS UNCERTAIN.
     Route: 048

REACTIONS (2)
  - Gastrointestinal stromal tumour [Recovering/Resolving]
  - Hepatic cancer metastatic [Recovering/Resolving]
